FAERS Safety Report 9677351 (Version 2)
Quarter: 2013Q4

REPORT INFORMATION
  Report Type: Spontaneous
  Country: ES (occurrence: ES)
  Receive Date: 20131108
  Receipt Date: 20131122
  Transmission Date: 20140711
  Serious: Yes (Hospitalization, Other)
  Sender: FDA-Public Use
  Company Number: ES-009507513-1311ESP000081

PATIENT
  Age: 50 Year
  Sex: Male

DRUGS (4)
  1. VICTRELIS [Suspect]
     Indication: HEPATITIS C
     Dosage: UNK
     Route: 048
     Dates: start: 201307
  2. PEGASYS [Suspect]
     Indication: HEPATITIS C
     Dosage: UNK
     Route: 058
     Dates: start: 201306
  3. RIBAVIRIN [Suspect]
     Indication: HEPATITIS C
     Dosage: UNK
     Route: 048
     Dates: start: 2013
  4. RIBAVIRIN [Suspect]
     Dosage: UNK
     Route: 048
     Dates: start: 201306, end: 2013

REACTIONS (6)
  - Peritonitis bacterial [Recovered/Resolved]
  - Anaemia [Recovering/Resolving]
  - Ascites [Recovering/Resolving]
  - Blood albumin decreased [Recovering/Resolving]
  - Weight decreased [Unknown]
  - Dysgeusia [Unknown]
